FAERS Safety Report 7631683 (Version 5)
Quarter: 2013Q4

REPORT INFORMATION
  Report Type: Spontaneous
  Country: US (occurrence: US)
  Receive Date: 20101018
  Receipt Date: 20131220
  Transmission Date: 20140711
  Serious: Yes (Hospitalization, Other)
  Sender: FDA-Public Use
  Company Number: US-BAYER-201036682NA

PATIENT
  Age: 26 Year
  Sex: Female
  Weight: 100 kg

DRUGS (11)
  1. YASMIN [Suspect]
     Dosage: UNK
     Route: 048
     Dates: start: 200404, end: 20080115
  2. SINGULAIR [Concomitant]
     Dosage: 10 MG, UNK
     Route: 048
     Dates: start: 20080721
  3. PROVENTIL HFA [Concomitant]
     Dosage: UNK UNK, Q4HR
     Route: 055
  4. CLARITIN D [Concomitant]
     Dosage: UNK
     Route: 048
     Dates: end: 20080721
  5. EFEXOR XL [Concomitant]
     Dosage: 75 MG, UNK
     Route: 048
  6. SUPPLEMENTS [Concomitant]
  7. LOESTRIN FE [Concomitant]
     Dosage: UNK
     Route: 048
  8. IRON [Concomitant]
     Dosage: 325 MG, UNK
  9. LYSINE [Concomitant]
  10. PHENAZOPYRIDINE [Concomitant]
     Dosage: 200 MG, UNK
  11. CIPROFLOXACIN [Concomitant]
     Dosage: 500 MG, UNK

REACTIONS (6)
  - Gallbladder disorder [Unknown]
  - Cholecystitis chronic [None]
  - Cholelithiasis [None]
  - Abdominal pain upper [None]
  - Nausea [None]
  - Dizziness [None]
